FAERS Safety Report 17826964 (Version 2)
Quarter: 2020Q2

REPORT INFORMATION
  Report Type: Spontaneous
  Country: RU (occurrence: RU)
  Receive Date: 20200526
  Receipt Date: 20200602
  Transmission Date: 20200714
  Serious: Yes (Hospitalization)
  Sender: FDA-Public Use
  Company Number: NVSC2020RU144053

PATIENT
  Sex: Female

DRUGS (4)
  1. RIBOCICLIB. [Suspect]
     Active Substance: RIBOCICLIB
     Indication: BREAST CANCER
     Dosage: UNK
     Route: 065
     Dates: start: 202001
  2. ANASTROZOLE. [Concomitant]
     Active Substance: ANASTROZOLE
     Indication: BREAST CANCER
     Dosage: UNK
     Route: 065
     Dates: start: 202001
  3. RIBOCICLIB. [Suspect]
     Active Substance: RIBOCICLIB
     Indication: METASTASES TO CENTRAL NERVOUS SYSTEM
  4. ANASTROZOLE. [Concomitant]
     Active Substance: ANASTROZOLE
     Indication: METASTASES TO CENTRAL NERVOUS SYSTEM

REACTIONS (4)
  - Rash [Unknown]
  - Blood creatinine increased [Unknown]
  - Glucose tolerance impaired [Unknown]
  - Hyperaesthesia [Unknown]
